FAERS Safety Report 6908202-7 (Version None)
Quarter: 2010Q3

REPORT INFORMATION
  Report Type: 
  Country: None (occurrence: None)
  Receive Date: 20100805
  Receipt Date: 20100730
  Transmission Date: 20110219
  Serious: Yes (Hospitalization)
  Sender: FDA-Public Use
  Company Number: US-BRISTOL-MYERS SQUIBB COMPANY-14721302

PATIENT
  Age: 66 Year
  Sex: Male

DRUGS (9)
  1. CISPLATIN [Suspect]
     Indication: METASTATIC CARCINOMA OF THE BLADDER
     Dosage: 21JUL09;RED 23JUN09;CYCLE3 DY8-30JUN09,DY15-07JUL09,LASTDOSE-C4 DAY1-21JUL09,50MG/M2:23JUN-21JUL10
     Route: 042
     Dates: start: 20090428, end: 20090721
  2. GEMZAR [Suspect]
     Indication: METASTATIC CARCINOMA OF THE BLADDER
     Dosage: 1000MG/M2,28APR-21JUL09;23JUN;C3D8-30JUN09,C3D15:07JUL09.C4,D1:21JUL09D8,15.800MG/M2:23JUN-21JUL09
     Route: 042
     Dates: start: 20090428, end: 20090721
  3. DILANTIN [Concomitant]
     Indication: CONVULSION
     Route: 065
  4. PHENOBARBITAL [Concomitant]
     Indication: CONVULSION
     Route: 065
  5. LORAZEPAM [Concomitant]
     Route: 065
  6. ALEVE (CAPLET) [Concomitant]
     Route: 065
  7. COMPAZINE [Concomitant]
     Route: 065
  8. ARIXTRA [Concomitant]
     Route: 065
  9. ARTRA [Concomitant]
     Indication: PULMONARY EMBOLISM
     Dates: start: 20090618

REACTIONS (1)
  - AUTONOMIC NEUROPATHY [None]
